FAERS Safety Report 24132225 (Version 1)
Quarter: 2024Q3

REPORT INFORMATION
  Report Type: Spontaneous
  Country: TR (occurrence: TR)
  Receive Date: 20240724
  Receipt Date: 20240724
  Transmission Date: 20241017
  Serious: Yes (Hospitalization)
  Sender: MACLEODS
  Company Number: TR-MLMSERVICE-20240704-PI123233-00296-1

PATIENT

DRUGS (1)
  1. SILDENAFIL [Suspect]
     Active Substance: SILDENAFIL
     Indication: Product used for unknown indication
     Dosage: INGESTING
     Route: 048

REACTIONS (4)
  - Pulmonary embolism [Unknown]
  - Syncope [Recovered/Resolved]
  - Hypotension [Recovered/Resolved]
  - Accidental exposure to product [Unknown]
